FAERS Safety Report 9648169 (Version 2)
Quarter: 2013Q4

REPORT INFORMATION
  Report Type: Spontaneous
  Country: US (occurrence: US)
  Receive Date: 20131028
  Receipt Date: 20131114
  Transmission Date: 20140711
  Serious: Yes (Hospitalization)
  Sender: FDA-Public Use
  Company Number: PHEH2013US022324

PATIENT
  Sex: Female

DRUGS (3)
  1. COMBIPATCH [Suspect]
     Dosage: UNK UKN, UNK
     Route: 062
     Dates: start: 201202
  2. COMBIPATCH [Suspect]
     Dosage: UNK UKN, UNK
     Route: 062
  3. LEXAPRO [Suspect]
     Dosage: UNK UKN, UNK

REACTIONS (5)
  - Tremor [Unknown]
  - Anxiety [Unknown]
  - Speech disorder [Unknown]
  - Merycism [Unknown]
  - Blood thyroid stimulating hormone decreased [Unknown]
